FAERS Safety Report 18508320 (Version 17)
Quarter: 2024Q2

REPORT INFORMATION
  Report Type: Report from Study
  Country: CA (occurrence: CA)
  Receive Date: 20201116
  Receipt Date: 20240627
  Transmission Date: 20240716
  Serious: Yes (Hospitalization, Other)
  Sender: FDA-Public Use
  Company Number: CA-SHIRE-CA201918937

PATIENT
  Age: 53 Year
  Sex: Female

DRUGS (68)
  1. ICATIBANT [Suspect]
     Active Substance: ICATIBANT ACETATE
     Indication: Hereditary angioedema
     Dosage: UNK
     Route: 058
     Dates: start: 20150701
  2. ICATIBANT [Suspect]
     Active Substance: ICATIBANT ACETATE
     Indication: Hereditary angioedema
     Dosage: UNK
     Route: 058
     Dates: start: 20150701
  3. ICATIBANT [Suspect]
     Active Substance: ICATIBANT ACETATE
     Indication: Hereditary angioedema with C1 esterase inhibitor deficiency
     Dosage: 30 MILLIGRAM
     Route: 065
     Dates: start: 20191216
  4. ICATIBANT [Suspect]
     Active Substance: ICATIBANT ACETATE
     Indication: Hereditary angioedema with C1 esterase inhibitor deficiency
     Dosage: 30 MILLIGRAM
     Route: 065
     Dates: start: 20191216
  5. ICATIBANT [Suspect]
     Active Substance: ICATIBANT ACETATE
     Dosage: UNK
     Route: 058
     Dates: start: 20191230
  6. ICATIBANT [Suspect]
     Active Substance: ICATIBANT ACETATE
     Dosage: UNK
     Route: 058
     Dates: start: 20191230
  7. ICATIBANT [Suspect]
     Active Substance: ICATIBANT ACETATE
     Dosage: UNK
     Route: 065
     Dates: start: 20200115
  8. ICATIBANT [Suspect]
     Active Substance: ICATIBANT ACETATE
     Dosage: UNK
     Route: 065
     Dates: start: 20200115
  9. ICATIBANT [Suspect]
     Active Substance: ICATIBANT ACETATE
     Dosage: UNK
     Route: 065
     Dates: start: 202002
  10. ICATIBANT [Suspect]
     Active Substance: ICATIBANT ACETATE
     Dosage: UNK
     Route: 065
     Dates: start: 202002
  11. ICATIBANT [Suspect]
     Active Substance: ICATIBANT ACETATE
     Dosage: UNK
     Route: 058
     Dates: start: 20200311
  12. ICATIBANT [Suspect]
     Active Substance: ICATIBANT ACETATE
     Dosage: UNK
     Route: 058
     Dates: start: 20200311
  13. ICATIBANT [Suspect]
     Active Substance: ICATIBANT ACETATE
     Dosage: UNK
     Route: 065
     Dates: start: 20200420
  14. ICATIBANT [Suspect]
     Active Substance: ICATIBANT ACETATE
     Dosage: UNK
     Route: 065
     Dates: start: 20200420
  15. ICATIBANT [Suspect]
     Active Substance: ICATIBANT ACETATE
     Dosage: UNK
     Route: 058
  16. ICATIBANT [Suspect]
     Active Substance: ICATIBANT ACETATE
     Dosage: UNK
     Route: 058
  17. ICATIBANT [Suspect]
     Active Substance: ICATIBANT ACETATE
     Dosage: UNK
     Route: 058
  18. ICATIBANT [Suspect]
     Active Substance: ICATIBANT ACETATE
     Dosage: UNK
     Route: 058
  19. ICATIBANT [Suspect]
     Active Substance: ICATIBANT ACETATE
     Dosage: UNK
     Route: 058
  20. ICATIBANT [Suspect]
     Active Substance: ICATIBANT ACETATE
     Dosage: UNK
     Route: 058
  21. ICATIBANT [Suspect]
     Active Substance: ICATIBANT ACETATE
     Dosage: UNK
     Route: 058
  22. ICATIBANT [Suspect]
     Active Substance: ICATIBANT ACETATE
     Dosage: UNK
     Route: 058
  23. ICATIBANT [Suspect]
     Active Substance: ICATIBANT ACETATE
     Dosage: UNK
     Route: 058
  24. ICATIBANT [Suspect]
     Active Substance: ICATIBANT ACETATE
     Dosage: UNK
     Route: 058
  25. ICATIBANT [Suspect]
     Active Substance: ICATIBANT ACETATE
     Dosage: UNK
     Route: 058
  26. ICATIBANT [Suspect]
     Active Substance: ICATIBANT ACETATE
     Dosage: UNK
     Route: 058
  27. ICATIBANT [Suspect]
     Active Substance: ICATIBANT ACETATE
     Dosage: UNK
     Route: 065
  28. ICATIBANT [Suspect]
     Active Substance: ICATIBANT ACETATE
     Dosage: UNK
     Route: 065
  29. ICATIBANT [Suspect]
     Active Substance: ICATIBANT ACETATE
     Dosage: UNK
     Route: 058
  30. ICATIBANT [Suspect]
     Active Substance: ICATIBANT ACETATE
     Dosage: UNK
     Route: 058
  31. ICATIBANT [Suspect]
     Active Substance: ICATIBANT ACETATE
     Dosage: UNK
     Route: 065
  32. ICATIBANT [Suspect]
     Active Substance: ICATIBANT ACETATE
     Dosage: UNK
     Route: 065
  33. ICATIBANT [Suspect]
     Active Substance: ICATIBANT ACETATE
     Dosage: UNK
     Route: 065
  34. ICATIBANT [Suspect]
     Active Substance: ICATIBANT ACETATE
     Dosage: UNK
     Route: 065
  35. ICATIBANT [Suspect]
     Active Substance: ICATIBANT ACETATE
     Dosage: UNK
     Route: 065
  36. ICATIBANT [Suspect]
     Active Substance: ICATIBANT ACETATE
     Dosage: UNK
     Route: 065
  37. ICATIBANT [Suspect]
     Active Substance: ICATIBANT ACETATE
     Dosage: UNK
     Route: 058
  38. ICATIBANT [Suspect]
     Active Substance: ICATIBANT ACETATE
     Dosage: UNK
     Route: 058
  39. ICATIBANT [Suspect]
     Active Substance: ICATIBANT ACETATE
     Dosage: 30 MILLIGRAM
     Route: 058
  40. ICATIBANT [Suspect]
     Active Substance: ICATIBANT ACETATE
     Dosage: 30 MILLIGRAM
     Route: 058
  41. ICATIBANT [Suspect]
     Active Substance: ICATIBANT ACETATE
     Dosage: 30 MILLIGRAM
     Route: 050
  42. ICATIBANT [Suspect]
     Active Substance: ICATIBANT ACETATE
     Dosage: 30 MILLIGRAM
     Route: 050
  43. ICATIBANT [Suspect]
     Active Substance: ICATIBANT ACETATE
     Dosage: UNK
     Route: 050
     Dates: start: 20230714
  44. ICATIBANT [Suspect]
     Active Substance: ICATIBANT ACETATE
     Dosage: UNK
     Route: 050
     Dates: start: 20230714
  45. ICATIBANT [Suspect]
     Active Substance: ICATIBANT ACETATE
     Dosage: UNK
     Route: 050
  46. ICATIBANT [Suspect]
     Active Substance: ICATIBANT ACETATE
     Dosage: UNK
     Route: 050
  47. ICATIBANT [Suspect]
     Active Substance: ICATIBANT ACETATE
     Dosage: UNK
     Route: 058
  48. ICATIBANT [Suspect]
     Active Substance: ICATIBANT ACETATE
     Dosage: UNK
     Route: 058
  49. ICATIBANT [Suspect]
     Active Substance: ICATIBANT ACETATE
     Dosage: UNK
     Route: 050
  50. ICATIBANT [Suspect]
     Active Substance: ICATIBANT ACETATE
     Dosage: UNK
     Route: 050
  51. ICATIBANT [Suspect]
     Active Substance: ICATIBANT ACETATE
     Dosage: UNK
     Route: 050
  52. ICATIBANT [Suspect]
     Active Substance: ICATIBANT ACETATE
     Dosage: UNK
     Route: 050
  53. ICATIBANT [Suspect]
     Active Substance: ICATIBANT ACETATE
     Dosage: UNK
     Route: 058
  54. ICATIBANT [Suspect]
     Active Substance: ICATIBANT ACETATE
     Dosage: UNK
     Route: 058
  55. ICATIBANT [Suspect]
     Active Substance: ICATIBANT ACETATE
     Dosage: UNK
     Route: 058
  56. ICATIBANT [Suspect]
     Active Substance: ICATIBANT ACETATE
     Dosage: UNK
     Route: 058
  57. ICATIBANT [Suspect]
     Active Substance: ICATIBANT ACETATE
     Dosage: UNK
     Route: 050
  58. ICATIBANT [Suspect]
     Active Substance: ICATIBANT ACETATE
     Dosage: UNK
     Route: 050
  59. ICATIBANT [Suspect]
     Active Substance: ICATIBANT ACETATE
     Dosage: UNK
     Route: 058
  60. ICATIBANT [Suspect]
     Active Substance: ICATIBANT ACETATE
     Dosage: UNK
     Route: 058
  61. ICATIBANT [Suspect]
     Active Substance: ICATIBANT ACETATE
     Dosage: UNK
     Route: 058
  62. ICATIBANT [Suspect]
     Active Substance: ICATIBANT ACETATE
     Dosage: UNK
     Route: 058
  63. TAKHZYRO [Suspect]
     Active Substance: LANADELUMAB-FLYO
     Indication: Hereditary angioedema with C1 esterase inhibitor deficiency
     Dosage: 300 MILLIGRAM, Q3WEEKS
     Route: 058
     Dates: start: 20210209
  64. TAKHZYRO [Suspect]
     Active Substance: LANADELUMAB-FLYO
     Dosage: 300 MILLIGRAM, Q3WEEKS
     Route: 058
     Dates: start: 20210902
  65. TAKHZYRO [Suspect]
     Active Substance: LANADELUMAB-FLYO
     Dosage: 2 DOSAGE FORM, Q3WEEKS
     Route: 050
  66. DANAZOL [Concomitant]
     Active Substance: DANAZOL
     Indication: Product used for unknown indication
     Dosage: 100 MILLIGRAM, QD
     Route: 048
  67. Reactine [Concomitant]
     Dosage: UNK
     Route: 065
  68. CYKLOKAPRON [Concomitant]
     Active Substance: TRANEXAMIC ACID
     Dosage: UNK
     Route: 065

REACTIONS (14)
  - Pleurisy [Unknown]
  - Pneumonia [Unknown]
  - Oropharyngeal discomfort [Recovering/Resolving]
  - Injury [Unknown]
  - COVID-19 [Unknown]
  - Musculoskeletal chest pain [Not Recovered/Not Resolved]
  - Arthralgia [Recovered/Resolved]
  - Drug ineffective [Unknown]
  - Vomiting [Unknown]
  - Myalgia [Recovered/Resolved]
  - Stress [Recovered/Resolved]
  - Hereditary angioedema [Recovered/Resolved]
  - Incorrect product administration duration [Recovering/Resolving]
  - Expired product administered [Unknown]

NARRATIVE: CASE EVENT DATE: 20201101
